FAERS Safety Report 6300489-7 (Version None)
Quarter: 2009Q3

REPORT INFORMATION
  Report Type: 
  Country: None (occurrence: None)
  Receive Date: 20090803
  Receipt Date: 20090715
  Transmission Date: 20100115
  Serious: Yes (Death, Hospitalization, Other)
  Sender: FDA-Public Use
  Company Number: UK208176

PATIENT
  Sex: Female

DRUGS (1)
  1. KINERET [Suspect]
     Indication: RHEUMATOID ARTHRITIS
     Dates: start: 20030101, end: 20031001

REACTIONS (5)
  - CONTUSION [None]
  - ENTERITIS [None]
  - FEMORAL NECK FRACTURE [None]
  - SPINAL DISORDER [None]
  - SUDDEN DEATH [None]
